FAERS Safety Report 7927225-2 (Version None)
Quarter: 2011Q4

REPORT INFORMATION
  Report Type: 
  Country: None (occurrence: None)
  Receive Date: 20111118
  Receipt Date: 20111111
  Transmission Date: 20120403
  Serious: Yes (Hospitalization)
  Sender: FDA-Public Use
  Company Number: US-UCBSA-045006

PATIENT
  Age: 50 Year
  Sex: Female
  Weight: 58.51 kg

DRUGS (8)
  1. CIMZIA [Suspect]
     Route: 058
     Dates: start: 20090605, end: 20090702
  2. PREDNISONE TAB [Concomitant]
     Indication: CROHN'S DISEASE
     Dates: start: 20060301
  3. PENTASA [Concomitant]
     Indication: CROHN'S DISEASE
     Dates: start: 20040101
  4. LOPRESSOR [Concomitant]
     Dosage: 50 MG
  5. CIMZIA [Suspect]
     Route: 058
     Dates: start: 20090731, end: 20091026
  6. MERCAPTOPURINE [Concomitant]
     Indication: CROHN'S DISEASE
     Dates: start: 20090323
  7. CALCIUM CARBONATE [Concomitant]
  8. CIMZIA [Suspect]
     Indication: CROHN'S DISEASE
     Route: 058
     Dates: end: 20100301

REACTIONS (1)
  - BRONCHITIS [None]
